FAERS Safety Report 7912995-X (Version None)
Quarter: 2011Q4

REPORT INFORMATION
  Report Type: 
  Country: None (occurrence: None)
  Receive Date: 20111114
  Receipt Date: 20111108
  Transmission Date: 20120403
  Serious: Yes (Death, Hospitalization)
  Sender: FDA-Public Use
  Company Number: KR-BRISTOL-MYERS SQUIBB COMPANY-16202384

PATIENT
  Age: 67 Year
  Sex: Female
  Weight: 47 kg

DRUGS (31)
  1. DOMPERIDONE [Concomitant]
     Dates: start: 20110907
  2. ATENOLOL [Concomitant]
     Dates: start: 20110101, end: 20111004
  3. ATROPINE [Concomitant]
     Dates: start: 20110928, end: 20110928
  4. MIDAZOLAM [Concomitant]
     Dates: start: 20110930, end: 20110930
  5. ACETAMINOPHEN [Concomitant]
     Dates: start: 20110930, end: 20110930
  6. NICARDIPINE HCL [Concomitant]
     Dates: start: 20111001, end: 20111004
  7. PACLITAXEL [Suspect]
     Indication: GASTRIC CANCER
     Dosage: PRIOR TO EVENT: 16SEP11.
     Route: 042
     Dates: start: 20110803, end: 20110916
  8. BETHANECHOL CHLORIDE [Concomitant]
     Dates: start: 20110928, end: 20110930
  9. VECURONIUM BROMIDE [Concomitant]
     Dates: start: 20110930, end: 20111004
  10. IPRATROPIUM BROMIDE [Concomitant]
  11. SODIUM CHLORIDE [Concomitant]
     Dates: start: 20111001, end: 20111003
  12. INSULIN ASPART [Concomitant]
     Dates: start: 20111004, end: 20111017
  13. ACETYLCYSTEINE [Concomitant]
     Dates: start: 20110907
  14. BARIUM SULFATE [Concomitant]
     Dates: start: 20110101, end: 20110927
  15. HYDROCHLOROTHIAZIDE [Concomitant]
     Dates: start: 20110101, end: 20111004
  16. TAMSULOSIN HCL [Concomitant]
     Dates: start: 20110831, end: 20110930
  17. PREDNISOLONE [Concomitant]
     Dates: start: 20110927, end: 20111008
  18. QUETIAPINE FUMARATE [Concomitant]
     Dates: start: 20110927, end: 20110927
  19. MEPERIDINE HCL [Concomitant]
     Dates: start: 20110928, end: 20110928
  20. AMINOPHYLLINE [Concomitant]
     Dates: start: 20110928, end: 20110930
  21. ALBUTEROL SULFATE AUTOHALER [Concomitant]
  22. VANCOMYCIN [Concomitant]
     Dates: start: 20110930, end: 20111013
  23. FUROSEMIDE [Concomitant]
  24. MOXIFLOXACIN [Concomitant]
     Dates: start: 20110928, end: 20110928
  25. TAZOBACTAM [Concomitant]
     Dates: start: 20110930, end: 20111013
  26. DEXTROSE [Concomitant]
  27. MEGESTROL ACETATE [Concomitant]
     Dates: start: 20110907
  28. SEPTRA [Concomitant]
     Dates: start: 20110927, end: 20111008
  29. RANITIDINE [Concomitant]
     Dates: start: 20110928, end: 20110928
  30. ROCURONIUM BROMIDE [Concomitant]
     Dates: start: 20110930, end: 20110930
  31. DOPAMINE HCL [Concomitant]
     Dates: start: 20111010, end: 20111010

REACTIONS (2)
  - MULTI-ORGAN FAILURE [None]
  - PNEUMONIA PRIMARY ATYPICAL [None]
